FAERS Safety Report 8248023-9 (Version None)
Quarter: 2012Q1

REPORT INFORMATION
  Report Type: 
  Country: None (occurrence: None)
  Receive Date: 20120330
  Receipt Date: 20120323
  Transmission Date: 20120608
  Serious: Yes (Hospitalization, Other)
  Sender: FDA-Public Use
  Company Number: CA-ROCHE-1017934

PATIENT
  Sex: Female

DRUGS (11)
  1. XOLAIR [Suspect]
     Route: 058
     Dates: start: 20111126
  2. XOLAIR [Suspect]
     Dates: start: 20111221
  3. FLONASE [Concomitant]
  4. XOLAIR [Suspect]
     Dates: start: 20120323
  5. LOSEC (CANADA) [Concomitant]
  6. FLOVENT [Concomitant]
  7. VENTOLIN [Concomitant]
  8. ADVAIR DISKUS 100/50 [Concomitant]
  9. XOLAIR [Suspect]
     Indication: ASTHMA
     Route: 058
     Dates: start: 20110719
  10. SINGULAIR [Concomitant]
  11. PREDNISONE TAB [Concomitant]

REACTIONS (8)
  - ASTHMA [None]
  - PULSELESS ELECTRICAL ACTIVITY [None]
  - PAIN [None]
  - STATUS ASTHMATICUS [None]
  - HYPOXIC-ISCHAEMIC ENCEPHALOPATHY [None]
  - INJECTION SITE PAIN [None]
  - INJECTION SITE MASS [None]
  - FATIGUE [None]
